FAERS Safety Report 6326890-3 (Version None)
Quarter: 2009Q3

REPORT INFORMATION
  Report Type: 
  Country: None (occurrence: None)
  Receive Date: 20090818
  Receipt Date: 20090615
  Transmission Date: 20100115
  Serious: No
  Sender: FDA-Public Use
  Company Number: WAES 0906USA02607

PATIENT
  Sex: Female

DRUGS (7)
  1. JANUVIA [Suspect]
     Dosage: PO
     Route: 048
     Dates: start: 20070101
  2. ALANTA [Concomitant]
  3. FORTAMET [Concomitant]
  4. LESCOL [Concomitant]
  5. ZETIA [Concomitant]
  6. GLIPIZIDE [Concomitant]
  7. VITAMINS (UNSPECIFIED) [Concomitant]

REACTIONS (1)
  - MEDICATION RESIDUE [None]
